FAERS Safety Report 6370139-2 (Version None)
Quarter: 2009Q3

REPORT INFORMATION
  Report Type: 
  Country: None (occurrence: None)
  Receive Date: 20090923
  Receipt Date: 20071109
  Transmission Date: 20100115
  Serious: Yes (Other)
  Sender: FDA-Public Use
  Company Number: US-ASTRAZENECA-2006UW22295

PATIENT
  Age: 603 Month
  Sex: Female
  Weight: 68.5 kg

DRUGS (24)
  1. SEROQUEL [Suspect]
     Indication: DEPRESSION
     Route: 048
     Dates: start: 20050801, end: 20060101
  2. SEROQUEL [Suspect]
     Indication: BIPOLAR DISORDER
     Route: 048
     Dates: start: 20050801, end: 20060101
  3. SEROQUEL [Suspect]
     Indication: ANXIETY
     Route: 048
     Dates: start: 20050801, end: 20060101
  4. SEROQUEL [Suspect]
     Indication: INSOMNIA
     Route: 048
     Dates: start: 20050801, end: 20060101
  5. SEROQUEL [Suspect]
     Dosage: 25 MG TO 50 MG
     Route: 048
     Dates: start: 20031020, end: 20040718
  6. SEROQUEL [Suspect]
     Dosage: 25 MG TO 50 MG
     Route: 048
     Dates: start: 20031020, end: 20040718
  7. SEROQUEL [Suspect]
     Dosage: 25 MG TO 50 MG
     Route: 048
     Dates: start: 20031020, end: 20040718
  8. SEROQUEL [Suspect]
     Dosage: 25 MG TO 50 MG
     Route: 048
     Dates: start: 20031020, end: 20040718
  9. SEROQUEL [Suspect]
     Dosage: 50 MG TO 900 MG
     Route: 048
     Dates: start: 20041005
  10. SEROQUEL [Suspect]
     Dosage: 50 MG TO 900 MG
     Route: 048
     Dates: start: 20041005
  11. SEROQUEL [Suspect]
     Dosage: 50 MG TO 900 MG
     Route: 048
     Dates: start: 20041005
  12. SEROQUEL [Suspect]
     Dosage: 50 MG TO 900 MG
     Route: 048
     Dates: start: 20041005
  13. LORAZEPAM [Concomitant]
     Indication: DEPRESSION
     Dosage: 1 MG 1 IN THE MORNING AND 1 AT NOON AND TWO IN THE PM, 1-2 TAB Q 3H PRN FOR REST
     Route: 065
  14. DEPAKOTE [Concomitant]
     Indication: BIPOLAR DISORDER
     Dosage: 250 MG IN MOR AND 500 AT BEDTIME, 500 MG BID, 500 MG 1 TAB IN MOR, 2 AT NIGHT
     Route: 065
  15. TRAZODONE [Concomitant]
     Indication: SLEEP DISORDER
     Dosage: 100 MG QHS, 100 MG AT BEDTIME,100MG 2 TAB AT NIGHT, 200 MG AT BEDTIME
     Route: 048
  16. SYNTHROID [Concomitant]
     Indication: HYPOTHYROIDISM
     Route: 065
  17. NEXIUM [Concomitant]
     Indication: GASTROOESOPHAGEAL REFLUX DISEASE
     Dosage: 40 QD, 40 MG BID
     Route: 065
  18. PREMARIN [Concomitant]
     Indication: HORMONE THERAPY
     Dosage: 1.25 Q DAY, 625 MGS QD
     Route: 065
  19. POTASSIUM CHLORIDE [Concomitant]
     Dosage: 20 MEQ ONE TWICE A DAY TOTAL DAILY DOSE 40 MEQ, 40 MEQ DAILY
     Route: 065
  20. ALBUTEROL [Concomitant]
     Indication: PNEUMONIA
     Dosage: MDI PRN
     Route: 065
  21. FLONASE [Concomitant]
     Indication: SINUS CONGESTION
     Dosage: 2 SPRAYS Q DAY
     Route: 045
  22. LOVENOX [Concomitant]
     Route: 058
  23. LASIX [Concomitant]
     Indication: CARDIAC FAILURE
     Route: 065
  24. ZANTAC [Concomitant]
     Route: 065

REACTIONS (1)
  - PANCREATITIS [None]
